FAERS Safety Report 6340247-0 (Version None)
Quarter: 2009Q3

REPORT INFORMATION
  Report Type: 
  Country: None (occurrence: None)
  Receive Date: 20090902
  Receipt Date: 20090817
  Transmission Date: 20100115
  Serious: Yes (Hospitalization)
  Sender: FDA-Public Use
  Company Number: 1000008465

PATIENT
  Age: 28 Year
  Sex: Female

DRUGS (3)
  1. CITALOPRAM HYDROBROMIDE [Suspect]
     Indication: DEPRESSION
     Dosage: 20 MG
  2. CONTRACEPTIVES (DESOGESTREL AND ETHINYLESTRADIOL) [Suspect]
     Indication: MENSTRUAL DISORDER
     Dosage: ORAL
     Route: 048
  3. ETODOLAK (ETODOLAC) [Concomitant]

REACTIONS (1)
  - CEREBRAL VASOCONSTRICTION [None]
